FAERS Safety Report 5151974-5 (Version None)
Quarter: 2006Q4

REPORT INFORMATION
  Report Type: 
  Country: None (occurrence: None)
  Receive Date: 20061109
  Receipt Date: 20061027
  Transmission Date: 20070319
  Serious: Yes (Other)
  Sender: FDA-Public Use
  Company Number: 2005115311

PATIENT
  Sex: Male
  Weight: 3.2205 kg

DRUGS (1)
  1. CABERGOLINE [Suspect]
     Indication: HYPERPROLACTINAEMIA
     Dosage: 250 MCG, INTERVAL:  EVERY WEEK), ORAL
     Route: 048
     Dates: start: 20020101, end: 20050201

REACTIONS (5)
  - DRUG EXPOSURE DURING PREGNANCY [None]
  - FOETAL HEART RATE DECREASED [None]
  - INDUCED LABOUR [None]
  - NEONATAL DISORDER [None]
  - PNEUMONITIS [None]
